FAERS Safety Report 16336734 (Version 2)
Quarter: 2019Q3

REPORT INFORMATION
  Report Type: Spontaneous
  Country: US (occurrence: US)
  Receive Date: 20190521
  Receipt Date: 20190803
  Transmission Date: 20191004
  Serious: Yes (Hospitalization)
  Sender: FDA-Public Use
  Company Number: US-USPHARMA LIMITED-000001

PATIENT
  Age: 70 Year

DRUGS (2)
  1. DABIGATRAN [Suspect]
     Active Substance: DABIGATRAN
     Indication: ARTERITIS
  2. NITROGLYCERIN. [Suspect]
     Active Substance: NITROGLYCERIN
     Indication: ARTERITIS
     Route: 061

REACTIONS (4)
  - Product use in unapproved indication [Unknown]
  - Ischaemia [Recovering/Resolving]
  - Ulcer [Unknown]
  - Drug ineffective [Unknown]
